FAERS Safety Report 7788604-X (Version None)
Quarter: 2011Q3

REPORT INFORMATION
  Report Type: 
  Country: None (occurrence: None)
  Receive Date: 20110928
  Receipt Date: 20110914
  Transmission Date: 20111222
  Serious: Yes (Other)
  Sender: FDA-Public Use
  Company Number: 982034

PATIENT
  Age: 70 Year
  Sex: Male
  Weight: 85.36 kg

DRUGS (3)
  1. PROPOFOL [Suspect]
     Indication: ANAESTHESIA
     Dosage: 90 MG, INTRAVENOUS (NOT OTHERWISE SPECIFIED)
     Route: 042
     Dates: start: 20110714, end: 20110714
  2. NEXIUM [Concomitant]
  3. TOPROL-XL [Concomitant]

REACTIONS (3)
  - COLD SWEAT [None]
  - BACK PAIN [None]
  - CHILLS [None]
